FAERS Safety Report 14270395 (Version 1)
Quarter: 2017Q4

REPORT INFORMATION
  Report Type: Report from Study
  Country: JP (occurrence: JP)
  Receive Date: 20171211
  Receipt Date: 20171211
  Transmission Date: 20180321
  Serious: Yes (Other)
  Sender: FDA-Public Use
  Company Number: JP-OTSUKA-JP-2011-11149

PATIENT
  Age: 67 Year
  Sex: Female

DRUGS (4)
  1. ABILIFY [Suspect]
     Active Substance: ARIPIPRAZOLE
     Indication: SCHIZOPHRENIA
     Dosage: 6 MG, QD
     Route: 048
     Dates: start: 20110711, end: 20110712
  2. OLANZAPINE. [Concomitant]
     Active Substance: OLANZAPINE
     Dosage: UNK
     Dates: end: 20110710
  3. ZYPREXA [Concomitant]
     Active Substance: OLANZAPINE
     Indication: SCHIZOPHRENIA
     Dosage: 2.5 MG, QD
     Route: 048
     Dates: end: 20110710
  4. ARIPIPRAZOLE. [Suspect]
     Active Substance: ARIPIPRAZOLE
     Indication: SCHIZOPHRENIA
     Dosage: 6 MG, QD
     Route: 048
     Dates: start: 20110711, end: 20110712

REACTIONS (1)
  - Hypertension [Recovered/Resolved]

NARRATIVE: CASE EVENT DATE: 20110712
